FAERS Safety Report 5615862-X (Version None)
Quarter: 2008Q1

REPORT INFORMATION
  Report Type: 
  Country: None (occurrence: None)
  Receive Date: 20080206
  Receipt Date: 20080125
  Transmission Date: 20080703
  Serious: Yes (Other)
  Sender: FDA-Public Use
  Company Number: DK-KINGPHARMUSA00001-K200800149

PATIENT

DRUGS (1)
  1. EPIPEN [Suspect]
     Indication: ANAPHYLACTIC REACTION
     Dosage: UNK, SINGLE
     Dates: start: 20071028, end: 20071028

REACTIONS (1)
  - OXYGEN SATURATION DECREASED [None]
